FAERS Safety Report 9286374 (Version 2)
Quarter: 2013Q2

REPORT INFORMATION
  Report Type: Spontaneous
  Country: CN (occurrence: CN)
  Receive Date: 20130513
  Receipt Date: 20130516
  Transmission Date: 20140414
  Serious: Yes (Other)
  Sender: FDA-Public Use
  Company Number: CN-BAYER-2013-058618

PATIENT
  Age: 33 Year
  Sex: Male

DRUGS (2)
  1. AVELOX [Suspect]
     Indication: NASOPHARYNGITIS
     Dosage: 1 DF, QD
     Route: 048
     Dates: start: 20130507, end: 20130509
  2. ANTIVIRALS NOS [Concomitant]
     Indication: NASOPHARYNGITIS
     Route: 048

REACTIONS (1)
  - Haematochezia [Recovered/Resolved]
